FAERS Safety Report 9053894 (Version 1)
Quarter: 2013Q1

REPORT INFORMATION
  Report Type: Report from Study
  Country: CA (occurrence: CA)
  Receive Date: 20130206
  Receipt Date: 20130206
  Transmission Date: 20140127
  Serious: Yes (Hospitalization)
  Sender: FDA-Public Use
  Company Number: CA-JNJFOC-20130200496

PATIENT
  Sex: Female
  Weight: 104.33 kg

DRUGS (1)
  1. STELARA [Suspect]
     Indication: PSORIASIS
     Dates: start: 20100126

REACTIONS (2)
  - Polyp [Unknown]
  - Neoplasm [Unknown]
